FAERS Safety Report 23467104 (Version 16)
Quarter: 2025Q4

REPORT INFORMATION
  Report Type: Spontaneous
  Country: EU (occurrence: EU)
  Receive Date: 20240201
  Receipt Date: 20251110
  Transmission Date: 20260117
  Serious: Yes (Other)
  Sender: SANDOZ
  Company Number: EU-BAXTER-2023BAX032994

PATIENT
  Sex: Male

DRUGS (74)
  1. ADRIACIN [Suspect]
     Active Substance: DOXORUBICIN HYDROCHLORIDE
     Indication: Chronic lymphocytic leukaemia
     Dosage: DRUG START : OCT 2022
     Route: 065
  2. ADRIACIN [Suspect]
     Active Substance: DOXORUBICIN HYDROCHLORIDE
     Indication: Chronic lymphocytic leukaemia
     Dosage: UNK ??-OCT-2022 00:00
     Route: 065
  3. ADRIACIN [Suspect]
     Active Substance: DOXORUBICIN HYDROCHLORIDE
     Indication: Diffuse large B-cell lymphoma
  4. ADRIACIN [Suspect]
     Active Substance: DOXORUBICIN HYDROCHLORIDE
     Indication: Diffuse large B-cell lymphoma
  5. ADRIACIN [Suspect]
     Active Substance: DOXORUBICIN HYDROCHLORIDE
     Indication: Leukaemia recurrent
  6. ADRIACIN [Suspect]
     Active Substance: DOXORUBICIN HYDROCHLORIDE
     Indication: Leukaemia recurrent
  7. ADRIACIN [Suspect]
     Active Substance: DOXORUBICIN HYDROCHLORIDE
     Indication: Richter^s syndrome
  8. ADRIACIN [Suspect]
     Active Substance: DOXORUBICIN HYDROCHLORIDE
     Indication: Richter^s syndrome
  9. BENDAMUSTINE [Suspect]
     Active Substance: BENDAMUSTINE
     Indication: Leukaemia recurrent
     Dosage: 2 CYCLES, (START DATE: JUL-2017) ROUTE OF ADMIN (FREE TEXT): UNKNOWN ROUTE
     Route: 042
     Dates: start: 201707
  10. BENDAMUSTINE [Suspect]
     Active Substance: BENDAMUSTINE
     Indication: Chronic lymphocytic leukaemia
     Dosage: 2 CYCLES, START DATE: JUL-2017
     Route: 042
  11. BENDAMUSTINE [Suspect]
     Active Substance: BENDAMUSTINE
     Indication: Diffuse large B-cell lymphoma
  12. BENDAMUSTINE [Suspect]
     Active Substance: BENDAMUSTINE
     Indication: Richter^s syndrome
  13. BRUKINSA [Suspect]
     Active Substance: ZANUBRUTINIB
     Indication: Richter^s syndrome
     Dosage: START DATE: ??-FEB-2022
     Route: 065
  14. BRUKINSA [Suspect]
     Active Substance: ZANUBRUTINIB
     Indication: Chronic lymphocytic leukaemia
     Dosage: START DATE: ??-FEB-2022 00:00, UNK
     Route: 065
  15. BRUKINSA [Suspect]
     Active Substance: ZANUBRUTINIB
     Indication: Diffuse large B-cell lymphoma
  16. BRUKINSA [Suspect]
     Active Substance: ZANUBRUTINIB
     Indication: Leukaemia recurrent
  17. CYCLOPHOSPHAMIDE [Suspect]
     Active Substance: CYCLOPHOSPHAMIDE
     Indication: Richter^s syndrome
     Dosage: FIRST LINE THERAPY( START DATE: 2013) ROUTE OF ADMIN (FREE TEXT): UNKNOWN ROUTE
     Route: 065
  18. CYCLOPHOSPHAMIDE [Suspect]
     Active Substance: CYCLOPHOSPHAMIDE
     Indication: Chronic lymphocytic leukaemia
     Dosage: START DATE: ??-OCT-2022 00:00, UNK
     Route: 065
  19. CYCLOPHOSPHAMIDE [Suspect]
     Active Substance: CYCLOPHOSPHAMIDE
     Indication: Leukaemia recurrent
     Dosage: UNK, (STAT DATE: OCT-2022)
     Route: 065
  20. CYCLOPHOSPHAMIDE [Suspect]
     Active Substance: CYCLOPHOSPHAMIDE
     Indication: Diffuse large B-cell lymphoma
  21. DIAZEPAM [Suspect]
     Active Substance: DIAZEPAM
     Indication: Chronic lymphocytic leukaemia
     Dosage: DOSAGE TEXT: 2 CYCLES, (POWDER FOR  CONCENTRATE FOR SOLUTION FOR INFUSION??-JUL-2017 00:00
     Route: 042
  22. DIAZEPAM [Suspect]
     Active Substance: DIAZEPAM
     Indication: Diffuse large B-cell lymphoma
  23. DIAZEPAM [Suspect]
     Active Substance: DIAZEPAM
     Indication: Leukaemia recurrent
  24. DIAZEPAM [Suspect]
     Active Substance: DIAZEPAM
     Indication: Richter^s syndrome
  25. DIAZEPAM [Suspect]
     Active Substance: DIAZEPAM
     Indication: Chronic lymphocytic leukaemia
     Dosage: HIMEXBON DIAZEPAM. START OF DRUG 00-JUL-2017, DOSAGE TEXT: 2 CYCLES, (POWDER FOR CONCENTRATE FOR SOL
     Route: 042
  26. DIAZEPAM [Suspect]
     Active Substance: DIAZEPAM
     Indication: Diffuse large B-cell lymphoma
  27. DIAZEPAM [Suspect]
     Active Substance: DIAZEPAM
     Indication: Leukaemia recurrent
  28. DIAZEPAM [Suspect]
     Active Substance: DIAZEPAM
     Indication: Richter^s syndrome
  29. FLUDARABINE [Suspect]
     Active Substance: FLUDARABINE PHOSPHATE
     Indication: Chronic lymphocytic leukaemia
     Dosage: UNK, FIRST LINE THERAPY, START DATE: ??-???-2013
     Route: 065
  30. FLUDARABINE [Suspect]
     Active Substance: FLUDARABINE PHOSPHATE
     Indication: Diffuse large B-cell lymphoma
  31. FLUDARABINE [Suspect]
     Active Substance: FLUDARABINE PHOSPHATE
     Indication: Leukaemia recurrent
  32. FLUDARABINE [Suspect]
     Active Substance: FLUDARABINE PHOSPHATE
     Indication: Richter^s syndrome
  33. IBRUTINIB [Suspect]
     Active Substance: IBRUTINIB
     Indication: Chronic lymphocytic leukaemia
     Dosage: START DATE: 12-OCT-2017 00:00, UNK ROUTE OF ADMIN (FREE TEXT): UNKNOWN ROUTE
     Route: 048
  34. IBRUTINIB [Suspect]
     Active Substance: IBRUTINIB
     Indication: Diffuse large B-cell lymphoma
  35. IBRUTINIB [Suspect]
     Active Substance: IBRUTINIB
     Indication: Leukaemia recurrent
  36. IBRUTINIB [Suspect]
     Active Substance: IBRUTINIB
     Indication: Richter^s syndrome
  37. IMBRUVICA [Suspect]
     Active Substance: IBRUTINIB
     Indication: Chronic lymphocytic leukaemia
     Dosage: START DATE:12-OCT-2017 00:00, UNK
     Route: 048
     Dates: start: 20171012
  38. IMBRUVICA [Suspect]
     Active Substance: IBRUTINIB
     Indication: Diffuse large B-cell lymphoma
  39. IMBRUVICA [Suspect]
     Active Substance: IBRUTINIB
     Indication: Leukaemia recurrent
  40. IMBRUVICA [Suspect]
     Active Substance: IBRUTINIB
     Indication: Richter^s syndrome
  41. LENALIDOMIDE [Suspect]
     Active Substance: LENALIDOMIDE
     Indication: Chronic lymphocytic leukaemia
     Dosage: DOSAGE TEXT: UNK,THERAPY START AND END  DATE:ASKU
     Route: 065
  42. LENALIDOMIDE [Suspect]
     Active Substance: LENALIDOMIDE
     Indication: Diffuse large B-cell lymphoma
  43. LENALIDOMIDE [Suspect]
     Active Substance: LENALIDOMIDE
     Indication: Leukaemia recurrent
  44. LENALIDOMIDE [Suspect]
     Active Substance: LENALIDOMIDE
     Indication: Richter^s syndrome
  45. PREDNISOLONE [Suspect]
     Active Substance: PREDNISOLONE
     Indication: Richter^s syndrome
     Dosage: DRUG START DATE: OCT 2022
     Route: 065
  46. PREDNISOLONE [Suspect]
     Active Substance: PREDNISOLONE
     Indication: Chronic lymphocytic leukaemia
  47. PREDNISOLONE [Suspect]
     Active Substance: PREDNISOLONE
     Indication: Diffuse large B-cell lymphoma
  48. PREDNISOLONE [Suspect]
     Active Substance: PREDNISOLONE
     Indication: Leukaemia recurrent
  49. RITUXIMAB [Suspect]
     Active Substance: RITUXIMAB
     Indication: Chronic lymphocytic leukaemia
     Dosage: FIRST LINE THERAPY, START OF DRUG- ??-???-2013
     Route: 065
     Dates: start: 202202
  50. RITUXIMAB [Suspect]
     Active Substance: RITUXIMAB
     Indication: Leukaemia recurrent
     Dosage: UNK
     Route: 065
  51. RITUXIMAB [Suspect]
     Active Substance: RITUXIMAB
     Dosage: UNK END DATE SHOULD BE 2022
     Route: 065
     Dates: start: 202202
  52. RITUXIMAB [Suspect]
     Active Substance: RITUXIMAB
     Indication: Richter^s syndrome
     Dosage: UNK, START OF DRUG ??-???-2013
     Route: 065
     Dates: start: 2013
  53. RITUXIMAB [Suspect]
     Active Substance: RITUXIMAB
     Indication: Diffuse large B-cell lymphoma
     Dosage: UNK, START OF DRUG ??-OCT-2022
     Route: 065
     Dates: start: 202210
  54. RITUXIMAB [Suspect]
     Active Substance: RITUXIMAB
     Dosage: UNK, START OF DRUG ??-OCT-2022
     Route: 065
  55. TEVIMBRA [Suspect]
     Active Substance: TISLELIZUMAB-JSGR
     Indication: Chronic lymphocytic leukaemia
     Dosage: UNK, (START DATE: FEB 2022),THERAPY START AND END DATE:ASKU
     Route: 065
  56. TEVIMBRA [Suspect]
     Active Substance: TISLELIZUMAB-JSGR
     Indication: Diffuse large B-cell lymphoma
  57. TEVIMBRA [Suspect]
     Active Substance: TISLELIZUMAB-JSGR
     Indication: Leukaemia recurrent
  58. TEVIMBRA [Suspect]
     Active Substance: TISLELIZUMAB-JSGR
     Indication: Richter^s syndrome
  59. TISLELIZUMAB [Suspect]
     Active Substance: TISLELIZUMAB
     Indication: Richter^s syndrome
     Dosage: START DATE: ??-FEB-2022 00:00
     Route: 065
  60. TISLELIZUMAB [Suspect]
     Active Substance: TISLELIZUMAB
     Indication: Diffuse large B-cell lymphoma
     Dosage: START DATE: ??-FEB-2022 00:00, UNK
     Route: 065
  61. TISLELIZUMAB [Suspect]
     Active Substance: TISLELIZUMAB
     Indication: Chronic lymphocytic leukaemia
  62. TISLELIZUMAB [Suspect]
     Active Substance: TISLELIZUMAB
     Indication: Leukaemia recurrent
  63. VENETOCLAX [Suspect]
     Active Substance: VENETOCLAX
     Indication: Chronic lymphocytic leukaemia
     Dosage: UNK, (START DATE: 2017), THERAPY START AND END DATE: ASKU
     Route: 048
  64. VENETOCLAX [Suspect]
     Active Substance: VENETOCLAX
     Indication: Leukaemia recurrent
     Dosage: UNK, START DATE : ??-???-2017
     Route: 048
  65. VENETOCLAX [Suspect]
     Active Substance: VENETOCLAX
     Indication: Diffuse large B-cell lymphoma
  66. VENETOCLAX [Suspect]
     Active Substance: VENETOCLAX
     Indication: Richter^s syndrome
  67. VINCRISTINE SULFATE [Suspect]
     Active Substance: VINCRISTINE SULFATE
     Indication: Richter^s syndrome
     Dosage: POWDER FOR INFUSION, UNK, (OCT-2022) ROUTE OF ADMIN (FREE TEXT): UNKNOWN ROUTE
     Route: 065
  68. VINCRISTINE SULFATE [Suspect]
     Active Substance: VINCRISTINE SULFATE
     Indication: Chronic lymphocytic leukaemia
     Dosage: UNK
     Route: 065
  69. VINCRISTINE SULFATE [Suspect]
     Active Substance: VINCRISTINE SULFATE
     Indication: Leukaemia recurrent
     Dosage: UNK
     Route: 065
  70. VINCRISTINE SULFATE [Suspect]
     Active Substance: VINCRISTINE SULFATE
     Indication: Diffuse large B-cell lymphoma
  71. ZANUBRUTINIB [Suspect]
     Active Substance: ZANUBRUTINIB
     Indication: Chronic lymphocytic leukaemia
     Dosage: UNK, (START DATE: FEB-2022) ROUTE OF ADMIN (FREE TEXT): UNKNOWN ROUTE
     Route: 065
  72. ZANUBRUTINIB [Suspect]
     Active Substance: ZANUBRUTINIB
     Indication: Diffuse large B-cell lymphoma
  73. ZANUBRUTINIB [Suspect]
     Active Substance: ZANUBRUTINIB
     Indication: Leukaemia recurrent
  74. ZANUBRUTINIB [Suspect]
     Active Substance: ZANUBRUTINIB
     Indication: Richter^s syndrome

REACTIONS (10)
  - Lymphadenopathy [Unknown]
  - Lymphadenopathy [Unknown]
  - Richter^s syndrome [Unknown]
  - Malignant neoplasm progression [Unknown]
  - Thrombocytopenia [Unknown]
  - Disease progression [Unknown]
  - Anaemia [Unknown]
  - Off label use [Unknown]
  - Off label use [Recovered/Resolved]
  - Off label use [Recovered/Resolved]

NARRATIVE: CASE EVENT DATE: 20020201
